FAERS Safety Report 24690174 (Version 2)
Quarter: 2025Q3

REPORT INFORMATION
  Report Type: Spontaneous
  Country: CA (occurrence: CA)
  Receive Date: 20241203
  Receipt Date: 20250810
  Transmission Date: 20251020
  Serious: Yes (Other)
  Sender: ALEXION PHARMACEUTICALS
  Company Number: CA-AstraZeneca-CH-00732510AMP

PATIENT
  Sex: Female

DRUGS (1)
  1. SYMBICORT [Suspect]
     Active Substance: BUDESONIDE\FORMOTEROL FUMARATE DIHYDRATE
     Dosage: 200 MICROGRAM, TID

REACTIONS (10)
  - Deafness unilateral [Unknown]
  - Dizziness [Unknown]
  - Tremor [Unknown]
  - Dyspnoea [Unknown]
  - Gait inability [Unknown]
  - Feeling abnormal [Unknown]
  - Malaise [Unknown]
  - Drug ineffective [Unknown]
  - Device defective [Unknown]
  - Device use issue [Unknown]
